FAERS Safety Report 6359023-8 (Version None)
Quarter: 2009Q3

REPORT INFORMATION
  Report Type: 
  Country: None (occurrence: None)
  Receive Date: 20090917
  Receipt Date: 20071031
  Transmission Date: 20100115
  Serious: Yes (Other)
  Sender: FDA-Public Use
  Company Number: US-ASTRAZENECA-2006UW21813

PATIENT
  Age: 10020 Day
  Sex: Female
  Weight: 65.8 kg

DRUGS (6)
  1. SEROQUEL [Suspect]
     Indication: DEPRESSION
     Route: 048
     Dates: start: 20040101, end: 20060101
  2. SEROQUEL [Suspect]
     Route: 048
     Dates: start: 20041201
  3. TRINESSA [Concomitant]
     Dates: start: 20040810
  4. DEPAKOTE [Concomitant]
     Dates: start: 20050105
  5. LEXAPRO [Concomitant]
     Dates: start: 20041118
  6. DEPO-PROVERA [Concomitant]
     Route: 030

REACTIONS (5)
  - DIABETES MELLITUS [None]
  - DRUG EXPOSURE DURING PREGNANCY [None]
  - GESTATIONAL DIABETES [None]
  - HYPOGLYCAEMIA [None]
  - TYPE 2 DIABETES MELLITUS [None]
